FAERS Safety Report 13486371 (Version 8)
Quarter: 2018Q4

REPORT INFORMATION
  Report Type: Spontaneous
  Country: CA (occurrence: CA)
  Receive Date: 20170426
  Receipt Date: 20181004
  Transmission Date: 20190204
  Serious: Yes (Hospitalization, Other)
  Sender: FDA-Public Use
  Company Number: CA-CELLTRION INC.-2016CA013662

PATIENT

DRUGS (13)
  1. INFLECTRA [Suspect]
     Active Substance: INFLIXIMAB-DYYB
     Dosage: 3 MG/KG, CYCLIC (EVERY 2, 6 WEEKS, THEN EVERY 8 WEEKS)
     Route: 042
     Dates: start: 20160718, end: 20161024
  2. INFLECTRA [Suspect]
     Active Substance: INFLIXIMAB-DYYB
     Dosage: 5 MG/KG (300 MG), CYCLIC (EVERY 6 TO 8 WEEKS)
     Route: 042
     Dates: start: 20180427
  3. PLAQUENIL [Concomitant]
     Active Substance: HYDROXYCHLOROQUINE SULFATE
     Dosage: 200.00 MG, DAILY
  4. DIPHENHYDRAMINE. [Concomitant]
     Active Substance: DIPHENHYDRAMINE
     Dosage: UNK
  5. INFLECTRA [Suspect]
     Active Substance: INFLIXIMAB-DYYB
     Dosage: 5 MG/KG (300 MG), CYCLIC (EVERY 6 TO 8 WEEKS)
     Route: 042
     Dates: start: 20180920
  6. METHOTREXATE. [Concomitant]
     Active Substance: METHOTREXATE
     Dosage: 20 MG, WEEKLY
     Dates: start: 2014
  7. PANTOLOC                           /01263204/ [Concomitant]
     Active Substance: PANTOPRAZOLE SODIUM
     Dosage: 20.00 MG, DAILY
  8. ACETAMINOPHEN. [Concomitant]
     Active Substance: ACETAMINOPHEN
     Dosage: UNK
  9. FOLIC ACID. [Concomitant]
     Active Substance: FOLIC ACID
     Dosage: 5 MG, UNK
  10. INFLECTRA [Suspect]
     Active Substance: INFLIXIMAB-DYYB
     Dosage: 5 MG/KG (300 MG), CYCLIC (EVERY 6 TO 8 WEEKS)
     Route: 042
     Dates: start: 20161205
  11. NAPROXEN                           /00256202/ [Concomitant]
     Active Substance: NAPROXEN SODIUM
     Dosage: 500 MG, BID (2X/DAY)
  12. INFLECTRA [Suspect]
     Active Substance: INFLIXIMAB-DYYB
     Indication: RHEUMATOID ARTHRITIS
     Dosage: 300 MG, EVERY 6 WEEKS FOR 12MONTHS
     Route: 042
     Dates: start: 20160718
  13. TYLENOL [Concomitant]
     Active Substance: ACETAMINOPHEN
     Dosage: 500 MG, BID (2X/DAY)

REACTIONS (11)
  - Pneumothorax [Unknown]
  - Flushing [Recovered/Resolved]
  - Sensitivity to weather change [Unknown]
  - Swelling [Recovered/Resolved]
  - Product use issue [Unknown]
  - Skin infection [Unknown]
  - Body temperature decreased [Unknown]
  - Pruritus [Recovered/Resolved]
  - Pain [Unknown]
  - Malaise [Unknown]
  - Cough [Unknown]

NARRATIVE: CASE EVENT DATE: 20161205
